FAERS Safety Report 6217940-3 (Version None)
Quarter: 2009Q2

REPORT INFORMATION
  Report Type: 
  Country: None (occurrence: None)
  Receive Date: 20090608
  Receipt Date: 20090604
  Transmission Date: 20091009
  Serious: Yes (Other)
  Sender: FDA-Public Use
  Company Number: GB-JNJFOC-20090506083

PATIENT
  Age: 27 Year
  Sex: Female

DRUGS (6)
  1. RISPERDAL [Suspect]
     Route: 048
  2. RISPERDAL [Suspect]
     Indication: ASPERGER'S DISORDER
     Route: 048
  3. VENLAFAXINE HCL [Concomitant]
     Route: 048
  4. CARBAMAZEPINE [Concomitant]
     Route: 048
  5. CARBAMAZEPINE [Concomitant]
     Route: 048
  6. DIAZEPAM [Concomitant]
     Route: 048

REACTIONS (3)
  - DEPERSONALISATION [None]
  - PSYCHOMOTOR HYPERACTIVITY [None]
  - STRESS [None]
